FAERS Safety Report 16598593 (Version 5)
Quarter: 2019Q4

REPORT INFORMATION
  Report Type: Report from Study
  Country: US (occurrence: US)
  Receive Date: 20190719
  Receipt Date: 20191120
  Transmission Date: 20200122
  Serious: Yes (Other)
  Sender: FDA-Public Use
  Company Number: US-PUMA BIOTECHNOLOGY, LTD.-2019US000778

PATIENT

DRUGS (6)
  1. NERLYNX [Suspect]
     Active Substance: NERATINIB
     Dosage: 200 MG, DAILY
     Route: 048
     Dates: start: 20190213, end: 20190226
  2. NERLYNX [Suspect]
     Active Substance: NERATINIB
     Dosage: 240 MG, DAILY
     Route: 048
     Dates: start: 20190227, end: 2019
  3. ANASTROZOLE. [Suspect]
     Active Substance: ANASTROZOLE
     Indication: PRODUCT USED FOR UNKNOWN INDICATION
  4. NERLYNX [Suspect]
     Active Substance: NERATINIB
     Indication: BREAST CANCER FEMALE
     Dosage: 120 MG, DAILY
     Route: 048
     Dates: start: 20190111, end: 20190129
  5. NERLYNX [Suspect]
     Active Substance: NERATINIB
     Dosage: 160 MG, DAILY
     Route: 048
     Dates: start: 20190130, end: 20190212
  6. NERLYNX [Suspect]
     Active Substance: NERATINIB
     Dosage: 200 MG, DAILY
     Route: 048
     Dates: start: 2019

REACTIONS (15)
  - Oral pain [Unknown]
  - Fatigue [Recovered/Resolved]
  - Back pain [Unknown]
  - Abdominal pain upper [Unknown]
  - Pain [Recovering/Resolving]
  - Arthritis [Unknown]
  - Urticaria [Unknown]
  - Nasal congestion [Recovering/Resolving]
  - Diarrhoea [Recovered/Resolved]
  - Renal disorder [Unknown]
  - Constipation [Not Recovered/Not Resolved]
  - Flatulence [Unknown]
  - Nausea [Not Recovered/Not Resolved]
  - Stomatitis [Unknown]
  - Gastric disorder [Unknown]

NARRATIVE: CASE EVENT DATE: 2019
